FAERS Safety Report 5312320-7 (Version None)
Quarter: 2007Q2

REPORT INFORMATION
  Report Type: 
  Country: None (occurrence: None)
  Receive Date: 20070430
  Receipt Date: 20061227
  Transmission Date: 20071010
  Serious: No
  Sender: FDA-Public Use
  Company Number: 2006UW24372

PATIENT
  Sex: Male

DRUGS (2)
  1. NEXIUM [Suspect]
     Indication: MUSCULOSKELETAL CHEST PAIN
     Route: 048
     Dates: start: 20060813
  2. CELEXA [Concomitant]
     Dates: start: 20060921

REACTIONS (11)
  - ANOREXIA [None]
  - APATHY [None]
  - CRYING [None]
  - DECREASED INTEREST [None]
  - DEPRESSION [None]
  - FEELING ABNORMAL [None]
  - INSOMNIA [None]
  - NERVOUSNESS [None]
  - SUICIDAL IDEATION [None]
  - TREMOR [None]
  - WEIGHT DECREASED [None]
